FAERS Safety Report 12947083 (Version 2)
Quarter: 2017Q1

REPORT INFORMATION
  Report Type: Spontaneous
  Country: IT (occurrence: IT)
  Receive Date: 20161116
  Receipt Date: 20170126
  Transmission Date: 20170428
  Serious: Yes (Life-Threatening)
  Sender: FDA-Public Use
  Company Number: IT-TEVA-710782ACC

PATIENT
  Age: 78 Year
  Sex: Male

DRUGS (3)
  1. FLUOROURACILE TEVA [Suspect]
     Active Substance: FLUOROURACIL
     Indication: COLON NEOPLASM
     Route: 042
  2. AVASTIN [Suspect]
     Active Substance: BEVACIZUMAB
  3. IRINOTECAN HOSPIRA [Suspect]
     Active Substance: IRINOTECAN
     Indication: COLON CANCER
     Route: 042

REACTIONS (6)
  - Visual acuity reduced [Recovering/Resolving]
  - Deafness [Recovering/Resolving]
  - Coma [Recovering/Resolving]
  - Encephalopathy [Recovering/Resolving]
  - Dysarthria [Recovering/Resolving]
  - Respiratory failure [Recovering/Resolving]

NARRATIVE: CASE EVENT DATE: 20160902
